FAERS Safety Report 18313055 (Version 1)
Quarter: 2020Q3

REPORT INFORMATION
  Report Type: Spontaneous
  Country: FR (occurrence: FR)
  Receive Date: 20200925
  Receipt Date: 20200925
  Transmission Date: 20201103
  Serious: Yes (Hospitalization)
  Sender: FDA-Public Use
  Company Number: FR-TEVA-2020-FR-1830339

PATIENT
  Age: 73 Year
  Sex: Female

DRUGS (12)
  1. METFORMINE [Suspect]
     Active Substance: METFORMIN HYDROCHLORIDE
     Indication: TYPE 2 DIABETES MELLITUS
     Dosage: UNSPECIFIED
     Route: 048
     Dates: end: 20200123
  2. VICTOZA [Concomitant]
     Active Substance: LIRAGLUTIDE
     Dosage: UNSPECIFIED
     Route: 058
  3. ZOPICLONE [Concomitant]
     Active Substance: ZOPICLONE
     Dosage: UNSPECIFIED
     Route: 048
  4. BISOPROLOL (FUMARATE ACIDE DE) [Concomitant]
     Active Substance: BISOPROLOL FUMARATE
     Dosage: UNSPECIFIED
     Route: 048
  5. LANSOPRAZOLE. [Concomitant]
     Active Substance: LANSOPRAZOLE
     Dosage: UNSPECIFIED
     Route: 048
  6. LEVOTHYROX 50 MICROGRAMMES, COMPRIME SECABLE [Concomitant]
     Active Substance: LEVOTHYROXINE SODIUM
     Dosage: UNSPECIFIED
     Route: 048
  7. AMIODARONE [Concomitant]
     Active Substance: AMIODARONE
     Dosage: UNSPECIFIED
     Route: 048
  8. PREGABALINE [Concomitant]
     Active Substance: PREGABALIN
     Dosage: UNSPECIFIED
     Route: 048
  9. CIFLOX 500 MG, COMPRIME PELLICULE SECABLE [Suspect]
     Active Substance: CIPROFLOXACIN HYDROCHLORIDE
     Indication: BRONCHITIS
     Dosage: UNSPECIFIED
     Route: 048
  10. COLCHIMAX [Concomitant]
     Dosage: UNSPECIFIED
     Route: 048
  11. LASILIX [Concomitant]
     Active Substance: FUROSEMIDE
     Dosage: UNSPECIFIED
     Route: 048
  12. ELIQUIS [Concomitant]
     Active Substance: APIXABAN
     Dosage: UNSPECIFIED
     Route: 048

REACTIONS (2)
  - Lactic acidosis [Recovered/Resolved]
  - Acute kidney injury [Recovered/Resolved]

NARRATIVE: CASE EVENT DATE: 20200123
